FAERS Safety Report 21057137 (Version 1)
Quarter: 2022Q3

REPORT INFORMATION
  Report Type: Spontaneous
  Country: US (occurrence: None)
  Receive Date: 20220707
  Receipt Date: 20220707
  Transmission Date: 20221027
  Serious: Yes (Death)
  Sender: FDA-Public Use
  Company Number: None

PATIENT
  Age: 74 Year
  Sex: Male
  Weight: 144 kg

DRUGS (4)
  1. GAMUNEX [Suspect]
     Active Substance: HUMAN IMMUNOGLOBULIN G
     Indication: Chronic inflammatory demyelinating polyradiculoneuropathy
     Dosage: OTHER FREQUENCY : Q4WEEKS;?
     Route: 042
     Dates: start: 20220705, end: 20220705
  2. GAMUNEX [Suspect]
     Active Substance: HUMAN IMMUNOGLOBULIN G
     Indication: Chronic inflammatory demyelinating polyradiculoneuropathy
     Dosage: OTHER FREQUENCY : Q4WEEKS;?
     Route: 042
     Dates: start: 20220614, end: 20220614
  3. Acetaminophen 650mg [Concomitant]
  4. DIPHENHYDRAMINE [Concomitant]
     Active Substance: DIPHENHYDRAMINE

REACTIONS (4)
  - Malaise [None]
  - Infusion related reaction [None]
  - Dysphagia [None]
  - Muscular weakness [None]

NARRATIVE: CASE EVENT DATE: 20220705
